FAERS Safety Report 18493899 (Version 1)
Quarter: 2020Q4

REPORT INFORMATION
  Report Type: Spontaneous
  Country: NL (occurrence: NL)
  Receive Date: 20201111
  Receipt Date: 20201111
  Transmission Date: 20210114
  Serious: Yes (Hospitalization, Other)
  Sender: FDA-Public Use
  Company Number: NL-AUROBINDO-AUR-APL-2020-055656

PATIENT
  Age: 77 Year
  Sex: Male

DRUGS (3)
  1. AMIODARONE [Suspect]
     Active Substance: AMIODARONE
     Indication: PRODUCT USED FOR UNKNOWN INDICATION
     Dosage: UNK
     Route: 065
  2. DIGOXIN. [Interacting]
     Active Substance: DIGOXIN
     Indication: PRODUCT USED FOR UNKNOWN INDICATION
     Dosage: UNK
     Route: 065
  3. METFORMIN [Suspect]
     Active Substance: METFORMIN HYDROCHLORIDE
     Indication: DIABETES MELLITUS
     Dosage: UNK
     Route: 065

REACTIONS (13)
  - Metabolic acidosis [Unknown]
  - Toxicity to various agents [Unknown]
  - Fatigue [Unknown]
  - Vomiting [Unknown]
  - Cardioactive drug level increased [Unknown]
  - Nausea [Unknown]
  - Hyperkalaemia [Unknown]
  - Cardiac failure [Unknown]
  - Renal impairment [Unknown]
  - Renal failure [Unknown]
  - Drug interaction [Unknown]
  - Cardiorenal syndrome [Unknown]
  - Diarrhoea [Unknown]
